FAERS Safety Report 4838982-6 (Version None)
Quarter: 2005Q4

REPORT INFORMATION
  Report Type: 
  Country: None (occurrence: None)
  Receive Date: 20051031
  Receipt Date: 20050816
  Transmission Date: 20060501
  Serious: No
  Sender: FDA-Public Use
  Company Number: 200516261US

PATIENT
  Sex: Female

DRUGS (1)
  1. KETEK [Suspect]

REACTIONS (1)
  - DIPLOPIA [None]
